FAERS Safety Report 13579688 (Version 1)
Quarter: 2017Q2

REPORT INFORMATION
  Report Type: Spontaneous
  Country: US (occurrence: US)
  Receive Date: 20170525
  Receipt Date: 20170525
  Transmission Date: 20170830
  Serious: No
  Sender: FDA-Public Use
  Company Number: US-CLINIGEN GROUP PLC/ CLINIGEN HEALTHCARE LTD-US-CLGN-16-00175

PATIENT

DRUGS (3)
  1. FOSCARNET?SODIUM [Suspect]
     Active Substance: FOSCARNET SODIUM
     Indication: PRODUCT USED FOR UNKNOWN INDICATION
     Dates: start: 201604
  2. CIDOFOVIR. [Concomitant]
     Active Substance: CIDOFOVIR
     Indication: CYTOMEGALOVIRUS INFECTION
  3. GANCICLOVIR. [Concomitant]
     Active Substance: GANCICLOVIR
     Indication: CYTOMEGALOVIRUS INFECTION

REACTIONS (1)
  - Cytomegalovirus test positive [Unknown]

NARRATIVE: CASE EVENT DATE: 2016
